FAERS Safety Report 9012124 (Version 1)
Quarter: 2013Q1

REPORT INFORMATION
  Report Type: Spontaneous
  Country: US (occurrence: US)
  Receive Date: 20130114
  Receipt Date: 20130114
  Transmission Date: 20140127
  Serious: No
  Sender: FDA-Public Use
  Company Number: US-PFIZER INC-2013014769

PATIENT
  Age: 44 Year
  Sex: Female
  Weight: 97.05 kg

DRUGS (3)
  1. CELEBREX [Suspect]
     Indication: ARTHRALGIA
     Dosage: 200 MG, UNK
     Dates: start: 20121224
  2. CYMBALTA [Concomitant]
     Dosage: UNK
  3. ABILIFY [Concomitant]
     Dosage: UNK

REACTIONS (5)
  - Drug dose omission [Unknown]
  - Dizziness [Unknown]
  - Nausea [Unknown]
  - Abdominal pain [Unknown]
  - Arthralgia [Unknown]
